FAERS Safety Report 9443868 (Version 2)
Quarter: 2013Q3

REPORT INFORMATION
  Report Type: Report from Study
  Country: HU (occurrence: HU)
  Receive Date: 20130806
  Receipt Date: 20130809
  Transmission Date: 20140515
  Serious: Yes (Other)
  Sender: FDA-Public Use
  Company Number: HU-ROCHE-1256699

PATIENT
  Age: 68 Year
  Sex: Female
  Weight: 60 kg

DRUGS (6)
  1. BEVACIZUMAB [Suspect]
     Indication: COLON CANCER
     Route: 042
     Dates: start: 20100323, end: 20110107
  2. BEVACIZUMAB [Suspect]
     Indication: RECTAL CANCER
  3. FLUOROURACIL [Suspect]
     Indication: COLON CANCER
     Route: 042
     Dates: end: 20110107
  4. FLUOROURACIL [Suspect]
     Indication: RECTAL CANCER
  5. ONDANSETRON [Concomitant]
     Indication: VOMITING
     Route: 048
     Dates: end: 20110107
  6. DICLOFENAC [Concomitant]
     Indication: OSTEOPOROSIS
     Route: 048
     Dates: end: 20110107

REACTIONS (1)
  - Liver disorder [Not Recovered/Not Resolved]
